FAERS Safety Report 22606606 (Version 4)
Quarter: 2024Q2

REPORT INFORMATION
  Report Type: Spontaneous
  Country: US (occurrence: US)
  Receive Date: 20230615
  Receipt Date: 20240406
  Transmission Date: 20240716
  Serious: Yes (Life-Threatening, Hospitalization)
  Sender: FDA-Public Use
  Company Number: US-TEVA-2023-US-2895958

PATIENT
  Age: 33 Year
  Sex: Female

DRUGS (1)
  1. FENTANYL [Suspect]
     Active Substance: FENTANYL\FENTANYL CITRATE
     Indication: Product used for unknown indication
     Route: 065

REACTIONS (10)
  - Rhabdomyolysis [Unknown]
  - Cardio-respiratory arrest [Recovered/Resolved]
  - Coma [Recovered/Resolved]
  - Toxicity to various agents [Unknown]
  - Post-anoxic myoclonus [Recovering/Resolving]
  - Dyspnoea [Recovered/Resolved]
  - Overdose [Unknown]
  - Wheezing [Recovered/Resolved]
  - Hypoxia [Unknown]
  - Myoclonus [Unknown]
